FAERS Safety Report 9217846 (Version 3)
Quarter: 2013Q2

REPORT INFORMATION
  Report Type: Spontaneous
  Country: JP (occurrence: JP)
  Receive Date: 20130408
  Receipt Date: 20130610
  Transmission Date: 20140414
  Serious: Yes (Hospitalization, Other)
  Sender: FDA-Public Use
  Company Number: JP-BAXTER-2013BAX012643

PATIENT
  Age: 41 Year
  Sex: Male
  Weight: 69 kg

DRUGS (5)
  1. ADVATE 1000 [Suspect]
     Indication: HAEMOSTASIS
     Route: 042
     Dates: start: 20130326, end: 20130326
  2. ADVATE 1000 [Suspect]
     Indication: FACTOR VIII DEFICIENCY
     Route: 042
     Dates: start: 20130327, end: 20130331
  3. ADVATE 1000 [Suspect]
     Route: 042
     Dates: start: 20130401, end: 20130407
  4. ADVATE 1000 [Suspect]
     Route: 042
     Dates: start: 20130408, end: 20130410
  5. ADVATE 1000 [Suspect]
     Route: 042
     Dates: start: 20130416, end: 20130416

REACTIONS (2)
  - Deep vein thrombosis [Recovered/Resolved]
  - Pulmonary embolism [Recovered/Resolved]
